FAERS Safety Report 11705240 (Version 1)
Quarter: 2015Q4

REPORT INFORMATION
  Report Type: Spontaneous
  Country: US (occurrence: US)
  Receive Date: 20151106
  Receipt Date: 20151106
  Transmission Date: 20160304
  Serious: Yes (Other)
  Sender: FDA-Public Use
  Company Number: US-BEH-2015055412

PATIENT
  Sex: Male
  Weight: 108 kg

DRUGS (22)
  1. ZEMAIRA [Suspect]
     Active Substance: .ALPHA.1-PROTEINASE INHIBITOR HUMAN
     Indication: EMPHYSEMA
     Route: 042
  2. PREDNISONE. [Concomitant]
     Active Substance: PREDNISONE
  3. HEPARIN [Concomitant]
     Active Substance: HEPARIN SODIUM
  4. CORTICOSTEROIDS [Concomitant]
     Active Substance: CORTICOSTEROID NOS
  5. BUMETANIDE. [Concomitant]
     Active Substance: BUMETANIDE
  6. GABAPENTIN. [Concomitant]
     Active Substance: GABAPENTIN
  7. ZEMAIRA [Suspect]
     Active Substance: .ALPHA.1-PROTEINASE INHIBITOR HUMAN
     Indication: ALPHA-1 ANTI-TRYPSIN DEFICIENCY
     Route: 042
  8. DIPHENHYDRAMINE. [Concomitant]
     Active Substance: DIPHENHYDRAMINE
  9. SODIUM CHLORIDE. [Concomitant]
     Active Substance: SODIUM CHLORIDE
  10. EPIPEN [Concomitant]
     Active Substance: EPINEPHRINE
  11. SPIRIVA [Concomitant]
     Active Substance: TIOTROPIUM BROMIDE MONOHYDRATE
  12. MULTIVITAMIN [Concomitant]
     Active Substance: VITAMINS
  13. MUCINEX [Concomitant]
     Active Substance: GUAIFENESIN
  14. ASTEPRO [Concomitant]
     Active Substance: AZELASTINE HYDROCHLORIDE
  15. FISH OIL [Concomitant]
     Active Substance: FISH OIL
  16. ALBUTEROL. [Concomitant]
     Active Substance: ALBUTEROL
  17. CEFPROZIL. [Concomitant]
     Active Substance: CEFPROZIL
  18. ROCEPHIN [Concomitant]
     Active Substance: CEFTRIAXONE SODIUM
  19. SYMBICORT [Concomitant]
     Active Substance: BUDESONIDE\FORMOTEROL FUMARATE DIHYDRATE
  20. OXYGEN. [Concomitant]
     Active Substance: OXYGEN
  21. NASONEX [Concomitant]
     Active Substance: MOMETASONE FUROATE
  22. NEXIUM [Concomitant]
     Active Substance: ESOMEPRAZOLE MAGNESIUM

REACTIONS (1)
  - Lung infection [Unknown]
